FAERS Safety Report 22314335 (Version 2)
Quarter: 2023Q2

REPORT INFORMATION
  Report Type: Spontaneous
  Country: US (occurrence: US)
  Receive Date: 20230512
  Receipt Date: 20230615
  Transmission Date: 20230722
  Serious: Yes (Life-Threatening, Hospitalization, Other)
  Sender: FDA-Public Use
  Company Number: US-AMERICAN REGENT INC-2023001109

PATIENT
  Age: 58 Year
  Sex: Female
  Weight: 97.5 kg

DRUGS (8)
  1. VENOFER [Suspect]
     Active Substance: IRON SUCROSE
     Indication: Product used for unknown indication
     Dosage: UNSPECIFIED DOSE IN AN UNSPECIFIED DILUTION
     Route: 042
  2. VENOFER [Suspect]
     Active Substance: IRON SUCROSE
     Dosage: 50 MILLIGRAM SALINE FLUSHED (NOT ALL PUSHED)
     Dates: start: 20230501, end: 20230501
  3. MIRCERA [Suspect]
     Active Substance: METHOXY POLYETHYLENE GLYCOL-EPOETIN BETA
     Indication: Anaemia
     Dosage: FIRST DOSE: 30 MICROGRAM, BI-WEEKLY (30 MCG, 2 IN 1 WEEK)
     Dates: start: 20230421, end: 20230421
  4. MIRCERA [Suspect]
     Active Substance: METHOXY POLYETHYLENE GLYCOL-EPOETIN BETA
     Dosage: SECOND DOSE: 30 MICROGRAM, BI-WEEKLY (30 MCG, 2 IN 1 WEEK)
     Dates: start: 20230501, end: 20230501
  5. CALCITRIOL [Concomitant]
     Active Substance: CALCITRIOL
     Indication: Product used for unknown indication
     Dosage: 0.5 MICROGRAM
     Route: 048
  6. LIQUACEL [Concomitant]
     Indication: Product used for unknown indication
     Dosage: 1 SERVING
     Route: 048
  7. OXYGEN [Concomitant]
     Active Substance: OXYGEN
     Indication: Product used for unknown indication
     Dosage: 2 L/MINUTE
     Route: 065
  8. OXYGEN [Concomitant]
     Active Substance: OXYGEN
     Dosage: UNK DOSE (INCREASE)
     Route: 065
     Dates: start: 20230421

REACTIONS (1)
  - Drug hypersensitivity [Recovered/Resolved]

NARRATIVE: CASE EVENT DATE: 20230421
